FAERS Safety Report 15825477 (Version 1)
Quarter: 2018Q4

REPORT INFORMATION
  Report Type: Spontaneous
  Country: US (occurrence: US)
  Receive Date: 20181214
  Receipt Date: 20181214
  Transmission Date: 20190205
  Serious: No
  Sender: FDA-Public Use
  Company Number: None

PATIENT
  Age: 42 Year
  Sex: Male
  Weight: 174 kg

DRUGS (2)
  1. LISINOPRIL. [Suspect]
     Active Substance: LISINOPRIL
     Indication: HYPERTENSION
     Dosage: ?          OTHER FREQUENCY:IN THE AM;?
     Route: 048
     Dates: start: 20181210, end: 20181213
  2. LISINOPRIL. [Suspect]
     Active Substance: LISINOPRIL
     Indication: CARDIAC FAILURE CONGESTIVE
     Dosage: ?          OTHER FREQUENCY:IN THE AM;?
     Route: 048
     Dates: start: 20181210, end: 20181213

REACTIONS (1)
  - Angioedema [None]

NARRATIVE: CASE EVENT DATE: 20181213
